FAERS Safety Report 5935165-3 (Version None)
Quarter: 2008Q4

REPORT INFORMATION
  Report Type: 
  Country: None (occurrence: None)
  Receive Date: 20081028
  Receipt Date: 20081013
  Transmission Date: 20090506
  Serious: Yes (Hospitalization)
  Sender: FDA-Public Use
  Company Number: B0542728A

PATIENT
  Age: 58 Year
  Sex: Female

DRUGS (3)
  1. PAROXETINE HCL [Suspect]
  2. LORMETAZEPAM [Concomitant]
  3. LORAZEPAM [Concomitant]

REACTIONS (6)
  - GRAND MAL CONVULSION [None]
  - HYPEROSMOLAR STATE [None]
  - HYPOCHLORAEMIA [None]
  - HYPONATRAEMIA [None]
  - PO2 INCREASED [None]
  - RHABDOMYOLYSIS [None]
